FAERS Safety Report 7237867-8 (Version None)
Quarter: 2011Q1

REPORT INFORMATION
  Report Type: 
  Country: None (occurrence: None)
  Receive Date: 20110121
  Receipt Date: 20101213
  Transmission Date: 20110831
  Serious: Yes (Life-Threatening, Hospitalization)
  Sender: FDA-Public Use
  Company Number: AU-ROCHE-754337

PATIENT
  Sex: Male

DRUGS (9)
  1. HEPARIN SODIUM [Concomitant]
  2. IPRATROPIUM BROMIDE [Concomitant]
  3. ALBUTEROL [Concomitant]
  4. AZITHROMYCIN [Concomitant]
  5. THIAMINE [Concomitant]
  6. HYDROCORTISONE [Suspect]
     Dosage: FREQUENCY: DAILY.
     Route: 065
     Dates: start: 20100906, end: 20100907
  7. OSELTAMIVIR [Suspect]
     Dosage: FREQUENCY: DAILY.
     Route: 048
     Dates: start: 20100906, end: 20100906
  8. CEFTRIAXONE [Concomitant]
  9. PANTOPRAZOLE [Concomitant]

REACTIONS (1)
  - STATUS EPILEPTICUS [None]
